FAERS Safety Report 8394884-2 (Version None)
Quarter: 2012Q2

REPORT INFORMATION
  Report Type: 
  Country: None (occurrence: None)
  Receive Date: 20120530
  Receipt Date: 20120518
  Transmission Date: 20120825
  Serious: Yes (Other)
  Sender: FDA-Public Use
  Company Number: US-ELI_LILLY_AND_COMPANY-US201205007172

PATIENT
  Age: 58 Year
  Sex: Male

DRUGS (5)
  1. CYMBALTA [Suspect]
     Dosage: 90 MG, QD
  2. ALCOHOL [Concomitant]
  3. CYMBALTA [Suspect]
     Dosage: 60 MG, QD
  4. CYMBALTA [Suspect]
     Indication: DEPRESSION
     Dosage: 20 MG, QD
     Dates: start: 20110301
  5. CYMBALTA [Suspect]
     Dosage: 120 MG, QD
     Dates: start: 20120101

REACTIONS (2)
  - COLON CANCER [None]
  - NEUROPATHY PERIPHERAL [None]
